FAERS Safety Report 6489716-3 (Version None)
Quarter: 2009Q4

REPORT INFORMATION
  Report Type: 
  Country: None (occurrence: None)
  Receive Date: 20091207
  Receipt Date: 20091119
  Transmission Date: 20100525
  Serious: Yes (Other)
  Sender: FDA-Public Use
  Company Number: 2009-00014

PATIENT
  Sex: Female

DRUGS (1)
  1. CLEAN + CLEAR ADVANTAGE ACNE SPOT TREATMENT [Suspect]
     Indication: ACNE
     Dosage: TOPICALLY
     Route: 061
     Dates: start: 20091001

REACTIONS (3)
  - APPLICATION SITE BURN [None]
  - APPLICATION SITE SCAR [None]
  - INJURY [None]
